FAERS Safety Report 8518110-6 (Version None)
Quarter: 2012Q3

REPORT INFORMATION
  Report Type: 
  Country: None (occurrence: None)
  Receive Date: 20120718
  Receipt Date: 20120712
  Transmission Date: 20120928
  Serious: Yes (Hospitalization, Other)
  Sender: FDA-Public Use
  Company Number: US-ABBOTT-12P-163-0955897-00

PATIENT
  Age: 47 Year
  Sex: Female

DRUGS (5)
  1. ZOFRAN [Concomitant]
     Indication: NAUSEA
  2. HUMIRA [Suspect]
     Indication: RHEUMATOID ARTHRITIS
     Dates: start: 20110101
  3. TOPOROL [Concomitant]
     Indication: PALPITATIONS
  4. ATENOLOL [Concomitant]
     Indication: PRODUCT USED FOR UNKNOWN INDICATION
     Dosage: DAILY
  5. REMICADE [Concomitant]
     Indication: RHEUMATOID ARTHRITIS

REACTIONS (15)
  - PALPITATIONS [None]
  - BLOOD POTASSIUM INCREASED [None]
  - FIBRIN D DIMER INCREASED [None]
  - TACHYCARDIA [None]
  - DYSPNOEA [None]
  - GAIT DISTURBANCE [None]
  - RHEUMATOID ARTHRITIS [None]
  - HEART RATE INCREASED [None]
  - ARTHRALGIA [None]
  - ABDOMINAL DISTENSION [None]
  - FEELING ABNORMAL [None]
  - BLOOD PRESSURE FLUCTUATION [None]
  - CYSTITIS INTERSTITIAL [None]
  - JOINT STIFFNESS [None]
  - FATIGUE [None]
